FAERS Safety Report 9134596 (Version 3)
Quarter: 2013Q2

REPORT INFORMATION
  Report Type: Report from Study
  Country: DE (occurrence: DE)
  Receive Date: 20130304
  Receipt Date: 20130429
  Transmission Date: 20140414
  Serious: Yes (Hospitalization, Other)
  Sender: FDA-Public Use
  Company Number: DE-VERTEX PHARMACEUTICALS INC.-2013-002952

PATIENT
  Age: 58 Year
  Sex: Male
  Weight: 77 kg

DRUGS (7)
  1. VX-950 (TELAPREVIR) [Suspect]
     Indication: HEPATITIS C
     Dosage: 2250 MG, QD
     Route: 048
     Dates: start: 20120224, end: 20120514
  2. COPEGUS [Suspect]
     Indication: HEPATITIS C
     Dosage: DOSAGE FORM: UNSPECIFIED
     Route: 048
     Dates: start: 20120206, end: 20121120
  3. PEGASYS [Suspect]
     Indication: HEPATITIS C
     Dosage: DOSAGE FORM: UNSPECIFIED
     Route: 058
     Dates: start: 20120517, end: 20121120
  4. TORASEMIDE [Concomitant]
     Indication: OEDEMA
     Dosage: DOSAGE FORM: UNSPECIFIED
     Route: 048
     Dates: start: 20121121
  5. TORASEMIDE [Concomitant]
     Indication: ASCITES
  6. SPIRONOLACTONE [Concomitant]
     Indication: OEDEMA
     Dosage: DOSAGE FORM: UNSPECIFIED
     Route: 048
     Dates: start: 20121121
  7. SPIRONOLACTONE [Concomitant]
     Indication: ASCITES

REACTIONS (3)
  - Fluid retention [Recovered/Resolved]
  - Waist circumference increased [Recovered/Resolved]
  - Hepatic cirrhosis [Recovered/Resolved]
